FAERS Safety Report 15452515 (Version 1)
Quarter: 2018Q4

REPORT INFORMATION
  Report Type: Spontaneous
  Country: FR (occurrence: FR)
  Receive Date: 20181001
  Receipt Date: 20181001
  Transmission Date: 20190204
  Serious: Yes (Hospitalization, Other)
  Sender: FDA-Public Use
  Company Number: FR-JNJFOC-20180923169

PATIENT

DRUGS (1)
  1. DUROGESIC [Suspect]
     Active Substance: FENTANYL
     Indication: PRODUCT USED FOR UNKNOWN INDICATION
     Route: 062

REACTIONS (8)
  - Drug dependence [Unknown]
  - Therapy naive [Unknown]
  - Hypoventilation [Unknown]
  - Constipation [Unknown]
  - Hospitalisation [Unknown]
  - Off label use [Unknown]
  - Somnolence [Unknown]
  - Disorientation [Unknown]
